FAERS Safety Report 15473058 (Version 2)
Quarter: 2019Q1

REPORT INFORMATION
  Report Type: Spontaneous
  Country: US (occurrence: US)
  Receive Date: 20181008
  Receipt Date: 20190213
  Transmission Date: 20190417
  Serious: Yes (Death, Hospitalization)
  Sender: FDA-Public Use
  Company Number: US-JNJFOC-20180932323

PATIENT
  Age: 69 Year
  Sex: Male

DRUGS (1)
  1. XARELTO [Suspect]
     Active Substance: RIVAROXABAN
     Indication: DEEP VEIN THROMBOSIS
     Dosage: 15 MG AND 20 MG
     Route: 048
     Dates: start: 201605, end: 20161024

REACTIONS (4)
  - Fall [Unknown]
  - Cerebral haemorrhage [Unknown]
  - Basal ganglia stroke [Fatal]
  - Encephalopathy [Unknown]

NARRATIVE: CASE EVENT DATE: 201610
